FAERS Safety Report 15058599 (Version 1)
Quarter: 2018Q2

REPORT INFORMATION
  Report Type: Report from Study
  Country: HU (occurrence: HU)
  Receive Date: 20180625
  Receipt Date: 20180625
  Transmission Date: 20180711
  Serious: Yes (Other)
  Sender: FDA-Public Use
  Company Number: PHHY2018HU026381

PATIENT
  Sex: Female

DRUGS (4)
  1. REMERON [Concomitant]
     Active Substance: MIRTAZAPINE
     Indication: PRODUCT USED FOR UNKNOWN INDICATION
     Route: 065
  2. EXEMESTANE PHARMACENTER [Concomitant]
     Indication: PRODUCT USED FOR UNKNOWN INDICATION
     Route: 065
  3. AFINITOR [Suspect]
     Active Substance: EVEROLIMUS
     Indication: PRODUCT USED FOR UNKNOWN INDICATION
     Dosage: UNK
     Route: 065
     Dates: start: 201803
  4. CURIDOL [Concomitant]
     Indication: PRODUCT USED FOR UNKNOWN INDICATION
     Route: 065

REACTIONS (17)
  - Hot flush [Not Recovered/Not Resolved]
  - Blister [Unknown]
  - Fatigue [Not Recovered/Not Resolved]
  - Gingival blister [Recovered/Resolved]
  - Gait disturbance [Not Recovered/Not Resolved]
  - Nausea [Unknown]
  - Asthenia [Not Recovered/Not Resolved]
  - Gingival swelling [Recovered/Resolved]
  - Hepatic neoplasm [Not Recovered/Not Resolved]
  - Vomiting [Unknown]
  - Hyperhidrosis [Not Recovered/Not Resolved]
  - Feeding disorder [Unknown]
  - Bone neoplasm [Not Recovered/Not Resolved]
  - Bone marrow tumour cell infiltration [Not Recovered/Not Resolved]
  - Lung neoplasm [Not Recovered/Not Resolved]
  - Rash [Unknown]
  - Aphthous ulcer [Recovered/Resolved]
